FAERS Safety Report 24321444 (Version 2)
Quarter: 2024Q3

REPORT INFORMATION
  Report Type: Spontaneous
  Country: IT (occurrence: IT)
  Receive Date: 20240916
  Receipt Date: 20240928
  Transmission Date: 20241016
  Serious: Yes (Death, Other)
  Sender: BRISTOL MYERS SQUIBB
  Company Number: None

PATIENT
  Age: 23 Year
  Sex: Male
  Weight: 64 kg

DRUGS (8)
  1. OPDIVO [Suspect]
     Active Substance: NIVOLUMAB
     Indication: Primary mediastinal large B-cell lymphoma refractory
     Dosage: 240 MG EVERY 3 WEEKS
     Route: 042
     Dates: start: 20230413, end: 20240109
  2. YESCARTA [Suspect]
     Active Substance: AXICABTAGENE CILOLEUCEL
     Indication: Primary mediastinal large B-cell lymphoma refractory
     Dosage: 1 TOTAL
     Route: 042
     Dates: start: 20240205, end: 20240209
  3. LEVETIRACETAM [Concomitant]
     Active Substance: LEVETIRACETAM
     Indication: Epilepsy
  4. FOLIC ACID [Concomitant]
     Active Substance: FOLIC ACID
     Indication: Vitamin supplementation
     Dosage: 1 CP 4 PM ONLY MONDAY, WEDNESDAY AND FRIDAY
     Route: 048
     Dates: start: 202211, end: 20240209
  5. BACTRIM [Concomitant]
     Active Substance: SULFAMETHOXAZOLE\TRIMETHOPRIM
     Indication: Prophylaxis
     Dosage: 1 CP 4 PM ONLY MONDAY, WEDNESDAY AND FRIDAY?1 DOSAGE FORM
     Route: 048
     Dates: start: 202211, end: 20240209
  6. ACYCLOVIR [Concomitant]
     Active Substance: ACYCLOVIR
     Indication: Prophylaxis
     Dosage: 2 CP DAY
     Route: 048
     Dates: start: 202211, end: 20240209
  7. PANTOPRAZOLE SODIUM [Concomitant]
     Active Substance: PANTOPRAZOLE SODIUM
     Indication: Prophylaxis
     Dosage: 1 CP DAY
     Route: 048
     Dates: start: 202211, end: 20240209
  8. CHOLECALCIFEROL [Concomitant]
     Active Substance: CHOLECALCIFEROL
     Indication: Hypovitaminosis
     Dosage: 1 FL EVERY 15 DAYS?50000 INTERNATIONAL UNIT(S)
     Route: 048
     Dates: start: 202211, end: 20240209

REACTIONS (3)
  - Neurotoxicity [Fatal]
  - Off label use [Unknown]
  - Cytokine release syndrome [Fatal]

NARRATIVE: CASE EVENT DATE: 20240206
